FAERS Safety Report 4602409-X (Version None)
Quarter: 2005Q1

REPORT INFORMATION
  Report Type: 
  Country: None (occurrence: None)
  Receive Date: 20050307
  Receipt Date: 20050103
  Transmission Date: 20050727
  Serious: Yes (Hospitalization, Other)
  Sender: FDA-Public Use
  Company Number: 2004105372

PATIENT
  Age: 60 Year
  Sex: Female

DRUGS (7)
  1. BEXTRA [Suspect]
     Indication: MUSCULOSKELETAL PAIN
     Dosage: 10 MG (10 MG, 1 IN 1 D), ORAL
     Route: 048
     Dates: start: 20041028
  2. FLUOXETINE HYDROCHLORIDE [Concomitant]
  3. SERETIDE MITE (FLUTICASONE PROPIONATE, SALMETEROL XINAFOATE [Concomitant]
  4. MONTELUKAST SODIUM (MONTELUKAST SODIUM) [Concomitant]
  5. LOTREL [Concomitant]
  6. BUDESONIDE (BUDESONIDE) [Concomitant]
  7. LORATADINE [Concomitant]

REACTIONS (7)
  - BLISTER [None]
  - DERMATITIS EXFOLIATIVE [None]
  - DYSPNOEA [None]
  - ERYTHEMA [None]
  - HYPERSENSITIVITY [None]
  - PRURITUS [None]
  - RASH [None]
